FAERS Safety Report 6432936-4 (Version None)
Quarter: 2009Q4

REPORT INFORMATION
  Report Type: 
  Country: None (occurrence: None)
  Receive Date: 20091109
  Receipt Date: 20091028
  Transmission Date: 20100525
  Serious: Yes (Other)
  Sender: FDA-Public Use
  Company Number: JP-B.I. PHARMACEUTICALS,INC./RIDGEFIELD-2009-DE-06759GD

PATIENT
  Age: 71 Year
  Sex: Male

DRUGS (1)
  1. SIFROL [Suspect]
     Route: 048

REACTIONS (4)
  - DEMENTIA WITH LEWY BODIES [None]
  - EYE MOVEMENT DISORDER [None]
  - HALLUCINATION [None]
  - HALLUCINATION, VISUAL [None]
